FAERS Safety Report 25375434 (Version 1)
Quarter: 2025Q2

REPORT INFORMATION
  Report Type: Spontaneous
  Country: US (occurrence: None)
  Receive Date: 20250527
  Receipt Date: 20250527
  Transmission Date: 20250716
  Serious: Yes (Life-Threatening, Hospitalization, Disabling, Other)
  Sender: FDA-CTU
  Company Number: None

PATIENT
  Sex: Female
  Weight: 88.9 kg

DRUGS (5)
  1. IMPLANON [Suspect]
     Active Substance: ETONOGESTREL
  2. PHENTERMINE [Concomitant]
     Active Substance: PHENTERMINE
  3. Topical medication for skin [Concomitant]
  4. OMEGA-3 ACIDS [Concomitant]
     Active Substance: OMEGA-3 FATTY ACIDS
  5. VITAMIN D [Concomitant]
     Active Substance: VITAMIN D NOS

REACTIONS (13)
  - Pituitary-dependent Cushing^s syndrome [None]
  - Abdominal distension [None]
  - Asthenia [None]
  - Psychiatric symptom [None]
  - General physical health deterioration [None]
  - Pollakiuria [None]
  - Skin striae [None]
  - Pituitary tumour benign [None]
  - Mobility decreased [None]
  - Infection [None]
  - Brief resolved unexplained event [None]
  - Disability [None]
  - Endocrine disorder [None]
